FAERS Safety Report 18273076 (Version 2)
Quarter: 2020Q3

REPORT INFORMATION
  Report Type: Spontaneous
  Country: FR (occurrence: FR)
  Receive Date: 20200916
  Receipt Date: 20200929
  Transmission Date: 20201103
  Serious: Yes (Hospitalization)
  Sender: FDA-Public Use
  Company Number: FR-MYLANLABS-2020M1078239

PATIENT
  Age: 44 Year
  Sex: Male
  Weight: 92 kg

DRUGS (5)
  1. IMBRUVICA [Interacting]
     Active Substance: IBRUTINIB
     Indication: CHRONIC LYMPHOCYTIC LEUKAEMIA
     Dosage: 280 MILLIGRAM, QD
     Route: 048
     Dates: start: 20200803, end: 20200808
  2. FLUCONAZOLE. [Suspect]
     Active Substance: FLUCONAZOLE
     Indication: PNEUMONIA CRYPTOCOCCAL
     Dosage: 800 MILLIGRAM, QD
     Route: 048
     Dates: start: 20200723
  3. ZARZIO [Concomitant]
     Active Substance: FILGRASTIM
     Dosage: UNK
  4. ZELITREX [Concomitant]
     Active Substance: VALACYCLOVIR HYDROCHLORIDE
     Dosage: UNK
  5. WELLVONE [Concomitant]
     Active Substance: ATOVAQUONE
     Dosage: UNK

REACTIONS (9)
  - Rash maculo-papular [Recovering/Resolving]
  - Pyrexia [Recovered/Resolved]
  - Face oedema [Recovering/Resolving]
  - Drug interaction [Recovered/Resolved]
  - Hepatocellular injury [Recovered/Resolved]
  - Pruritus [Recovering/Resolving]
  - Off label use [Unknown]
  - Oral mucosal erythema [Recovering/Resolving]
  - Product use in unapproved indication [Unknown]

NARRATIVE: CASE EVENT DATE: 20200723
